FAERS Safety Report 23560421 (Version 1)
Quarter: 2024Q1

REPORT INFORMATION
  Report Type: Report from Study
  Country: US (occurrence: US)
  Receive Date: 20240223
  Receipt Date: 20240223
  Transmission Date: 20240409
  Serious: Yes (Hospitalization)
  Sender: FDA-Public Use
  Company Number: US-002147023-NVSC2024US037525

PATIENT
  Age: 37 Year
  Sex: Female

DRUGS (1)
  1. KESIMPTA [Suspect]
     Active Substance: OFATUMUMAB
     Indication: Product used for unknown indication
     Dosage: UNK
     Route: 065
     Dates: start: 20240131

REACTIONS (5)
  - Pyrexia [Unknown]
  - Vomiting [Unknown]
  - Paralysis [Unknown]
  - Hypotension [Unknown]
  - Rash [Unknown]

NARRATIVE: CASE EVENT DATE: 20240131
